FAERS Safety Report 12170932 (Version 2)
Quarter: 2016Q1

REPORT INFORMATION
  Report Type: Spontaneous
  Country: IN (occurrence: IN)
  Receive Date: 20160311
  Receipt Date: 20160311
  Transmission Date: 20160526
  Serious: Yes (Hospitalization, Other)
  Sender: FDA-Public Use
  Company Number: IN-ACTAVIS-2016-05463

PATIENT
  Age: 43 Year
  Sex: Male

DRUGS (4)
  1. PAROXETINE [Suspect]
     Active Substance: PAROXETINE\PAROXETINE HYDROCHLORIDE
     Indication: BACK PAIN
     Dosage: 40 MG, DAILY
     Route: 065
  2. TRAMADOL HYDROCHLORIDE AND ACETAMINOPHEN 37.5/325MG (WATSON) (TRAMADOL HYDROCHLORIDE ACETAMINOPHEN) [Suspect]
     Active Substance: ACETAMINOPHEN\TRAMADOL HYDROCHLORIDE
     Indication: BACK PAIN
     Dosage: 3 DF, DAILY
     Route: 065
  3. ONDANSETRON (UNKNOWN) [Suspect]
     Active Substance: ONDANSETRON
     Dosage: UNK
     Route: 042
  4. ONDANSETRON (UNKNOWN) [Suspect]
     Active Substance: ONDANSETRON
     Indication: NAUSEA
     Dosage: TDS
     Route: 048

REACTIONS (2)
  - Intestinal obstruction [None]
  - Serotonin syndrome [Recovered/Resolved]
